FAERS Safety Report 4864469-0 (Version None)
Quarter: 2005Q4

REPORT INFORMATION
  Report Type: 
  Country: None (occurrence: None)
  Receive Date: 20051222
  Receipt Date: 20051216
  Transmission Date: 20060501
  Serious: Yes (Hospitalization)
  Sender: FDA-Public Use
  Company Number: JP-JNJFOC-20051103357

PATIENT
  Age: 44 Year
  Sex: Male
  Weight: 85 kg

DRUGS (2)
  1. OFLOCET [Suspect]
     Indication: SALMONELLOSIS
     Route: 048
     Dates: start: 20051028, end: 20051101
  2. OFLOCET [Suspect]
     Indication: DIARRHOEA
     Route: 048
     Dates: start: 20051028, end: 20051101

REACTIONS (1)
  - INTESTINAL OBSTRUCTION [None]
